FAERS Safety Report 11294805 (Version 2)
Quarter: 2015Q3

REPORT INFORMATION
  Report Type: Spontaneous
  Country: FI (occurrence: FI)
  Receive Date: 20150723
  Receipt Date: 20150903
  Transmission Date: 20151125
  Serious: Yes (Hospitalization)
  Sender: FDA-Public Use
  Company Number: FI-ROCHE-1609915

PATIENT
  Age: 58 Year
  Sex: Female

DRUGS (1)
  1. ZELBORAF [Suspect]
     Active Substance: VEMURAFENIB
     Indication: METASTATIC MALIGNANT MELANOMA
     Route: 065
     Dates: start: 20150610, end: 20150618

REACTIONS (7)
  - Rash [Recovered/Resolved]
  - C-reactive protein abnormal [Recovered/Resolved]
  - Pyrexia [Recovered/Resolved]
  - Blood creatinine abnormal [Recovered/Resolved]
  - Alanine aminotransferase increased [Recovered/Resolved]
  - Hyponatraemia [Recovered/Resolved]
  - Eosinophil count abnormal [Recovered/Resolved]

NARRATIVE: CASE EVENT DATE: 20150616
